FAERS Safety Report 19003664 (Version 1)
Quarter: 2021Q1

REPORT INFORMATION
  Report Type: Spontaneous
  Country: US (occurrence: US)
  Receive Date: 20210312
  Receipt Date: 20210312
  Transmission Date: 20210420
  Serious: No
  Sender: FDA-Public Use
  Company Number: US-AMGEN-USASP2021036441

PATIENT
  Age: 55 Year
  Sex: Female

DRUGS (2)
  1. INOTUZUMAB OZOGAMICIN [Concomitant]
     Active Substance: INOTUZUMAB OZOGAMICIN
  2. BLINATUMOMAB [Suspect]
     Active Substance: BLINATUMOMAB
     Indication: B PRECURSOR TYPE ACUTE LEUKAEMIA
     Dosage: UNK
     Route: 065

REACTIONS (1)
  - Drug ineffective [Unknown]
